FAERS Safety Report 17094135 (Version 3)
Quarter: 2020Q1

REPORT INFORMATION
  Report Type: Spontaneous
  Country: JP (occurrence: JP)
  Receive Date: 20191129
  Receipt Date: 20200115
  Transmission Date: 20200409
  Serious: Yes (Other)
  Sender: FDA-Public Use
  Company Number: JP-ALLERGAN-1949141US

PATIENT
  Sex: Male

DRUGS (6)
  1. BOTOX [Suspect]
     Active Substance: ONABOTULINUMTOXINA
     Dosage: 4.5 UNITS, SINGLE
     Route: 065
     Dates: start: 20190712, end: 20190712
  2. HYALURONATE SODIUM [Concomitant]
     Active Substance: HYALURONATE SODIUM
     Dosage: 8 DF, QD
     Dates: start: 20190603
  3. BOTOX [Suspect]
     Active Substance: ONABOTULINUMTOXINA
     Indication: FACIAL SPASM
     Dosage: 15 UNITS, SINGLE
     Route: 030
     Dates: start: 20191113, end: 20191113
  4. BOTOX [Suspect]
     Active Substance: ONABOTULINUMTOXINA
     Dosage: 15 UNITS, SINGLE
     Route: 065
     Dates: start: 20190712, end: 20190712
  5. BOTOX [Suspect]
     Active Substance: ONABOTULINUMTOXINA
     Dosage: 2.5 UNITS, SINGLE
     Route: 065
     Dates: start: 20190712, end: 20190712
  6. DIQUAS OPHTHALMIC SOLUTION [Concomitant]
     Dosage: 12 DF, QD
     Dates: start: 20190603

REACTIONS (2)
  - Hypotony of eye [Recovered/Resolved]
  - Corneal disorder [Unknown]

NARRATIVE: CASE EVENT DATE: 20191113
